FAERS Safety Report 13952574 (Version 1)
Quarter: 2017Q3

REPORT INFORMATION
  Report Type: Spontaneous
  Country: US (occurrence: US)
  Receive Date: 20170911
  Receipt Date: 20170911
  Transmission Date: 20171128
  Serious: Yes (Hospitalization)
  Sender: FDA-Public Use
  Company Number: US-TEVA-746433USA

PATIENT
  Age: 64 Year
  Sex: Male

DRUGS (1)
  1. FENTANYL. [Suspect]
     Active Substance: FENTANYL
     Indication: PAIN
     Route: 062
     Dates: start: 20170204

REACTIONS (10)
  - Application site pruritus [Unknown]
  - Incorrect drug administration duration [Unknown]
  - Overdose [Unknown]
  - Feeling abnormal [Unknown]
  - Adverse event [Unknown]
  - Sensory disturbance [Unknown]
  - Wrong technique in product usage process [Unknown]
  - Drug ineffective [Unknown]
  - Product adhesion issue [Unknown]
  - Incorrect route of drug administration [Unknown]

NARRATIVE: CASE EVENT DATE: 2017
